FAERS Safety Report 8137614-1 (Version None)
Quarter: 2012Q1

REPORT INFORMATION
  Report Type: 
  Country: None (occurrence: None)
  Receive Date: 20120215
  Receipt Date: 20120206
  Transmission Date: 20120608
  Serious: No
  Sender: FDA-Public Use
  Company Number: US-JNJFOC-20120204147

PATIENT
  Sex: Female
  Weight: 117.94 kg

DRUGS (1)
  1. FENTANYL-100 [Suspect]
     Indication: NERVE INJURY
     Route: 062

REACTIONS (3)
  - PRODUCT QUALITY ISSUE [None]
  - DRUG INEFFECTIVE [None]
  - POOR QUALITY DRUG ADMINISTERED [None]
